FAERS Safety Report 6377833-8 (Version None)
Quarter: 2009Q3

REPORT INFORMATION
  Report Type: 
  Country: None (occurrence: None)
  Receive Date: 20090925
  Receipt Date: 20090914
  Transmission Date: 20100115
  Serious: Yes (Other)
  Sender: FDA-Public Use
  Company Number: US-PFIZER INC-2009269257

PATIENT

DRUGS (3)
  1. GEODON [Suspect]
  2. METHADONE [Suspect]
  3. ROXICODONE [Suspect]

REACTIONS (3)
  - CONFUSIONAL STATE [None]
  - DRUG INEFFECTIVE [None]
  - PALPITATIONS [None]
